FAERS Safety Report 5601573-3 (Version None)
Quarter: 2008Q1

REPORT INFORMATION
  Report Type: 
  Country: None (occurrence: None)
  Receive Date: 20080124
  Receipt Date: 20080114
  Transmission Date: 20080703
  Serious: Yes (Other)
  Sender: FDA-Public Use
  Company Number: US-KINGPHARMUSA00001-K200800044

PATIENT

DRUGS (3)
  1. ALTACE [Suspect]
     Indication: HYPERTENSION
     Dosage: 5 MG, QD
     Route: 048
     Dates: start: 20060101
  2. HEDERIX PLAN [Suspect]
     Indication: COUGH
     Dosage: 2 U SUPPOSITORIES, QD
     Route: 054
     Dates: start: 20071223, end: 20071226
  3. AMOXICILLIN [Concomitant]
     Dosage: 2 G, UNK
     Route: 048
     Dates: start: 20071220, end: 20071226

REACTIONS (2)
  - BLOOD POTASSIUM DECREASED [None]
  - SYNCOPE [None]
